FAERS Safety Report 17474506 (Version 1)
Quarter: 2020Q1

REPORT INFORMATION
  Report Type: Report from Study
  Country: PK (occurrence: PK)
  Receive Date: 20200228
  Receipt Date: 20200228
  Transmission Date: 20200409
  Serious: Yes (Death)
  Sender: FDA-Public Use
  Company Number: NVSC2020PK057694

PATIENT
  Age: 57 Year
  Sex: Male

DRUGS (1)
  1. SANDIMMUN NEORAL [Suspect]
     Active Substance: CYCLOSPORINE
     Indication: RENAL TRANSPLANT
     Dosage: 5 DF, BID
     Route: 048
     Dates: start: 20191015

REACTIONS (2)
  - Cardiac arrest [Fatal]
  - Sepsis [Fatal]

NARRATIVE: CASE EVENT DATE: 20200224
